FAERS Safety Report 8186422-4 (Version None)
Quarter: 2012Q1

REPORT INFORMATION
  Report Type: 
  Country: None (occurrence: None)
  Receive Date: 20120305
  Receipt Date: 20120305
  Transmission Date: 20120608
  Serious: No
  Sender: FDA-Public Use
  Company Number: None

PATIENT
  Age: 66 Year
  Sex: Female

DRUGS (1)
  1. DICLOFENAC SODIUM [Suspect]
     Dates: start: 20070411, end: 20070918

REACTIONS (4)
  - LIVER INJURY [None]
  - NECROSIS [None]
  - PANCREATITIS [None]
  - CHOLELITHIASIS [None]
